FAERS Safety Report 18493014 (Version 2)
Quarter: 2021Q2

REPORT INFORMATION
  Report Type: Other
  Country: ES (occurrence: ES)
  Receive Date: 20201112
  Receipt Date: 20210521
  Transmission Date: 20210717
  Serious: Yes (Other)
  Sender: FDA-Public Use
  Company Number: ES-ROCHE-2710536

PATIENT

DRUGS (5)
  1. TACROLIMUS. [Suspect]
     Active Substance: TACROLIMUS
     Indication: PROPHYLAXIS AGAINST TRANSPLANT REJECTION
     Route: 065
  2. TOCILIZUMAB. [Suspect]
     Active Substance: TOCILIZUMAB
     Indication: COVID-19
     Route: 065
  3. TOCILIZUMAB. [Suspect]
     Active Substance: TOCILIZUMAB
     Indication: RESPIRATORY FAILURE
  4. RAPAMYCIN [Suspect]
     Active Substance: SIROLIMUS
     Indication: PROPHYLAXIS AGAINST TRANSPLANT REJECTION
     Route: 065
  5. MYCOPHENOLATE MOFETIL. [Suspect]
     Active Substance: MYCOPHENOLATE MOFETIL
     Indication: PROPHYLAXIS AGAINST TRANSPLANT REJECTION
     Route: 065

REACTIONS (9)
  - Cytomegalovirus infection [Unknown]
  - Cardiac failure [Unknown]
  - Atelectasis [Unknown]
  - COVID-19 [Unknown]
  - Renal failure [Unknown]
  - Off label use [Unknown]
  - Bronchitis bacterial [Unknown]
  - Pneumonia bacterial [Unknown]
  - COVID-19 pneumonia [Unknown]
